FAERS Safety Report 8935982 (Version 1)
Quarter: 2012Q4

REPORT INFORMATION
  Report Type: 
  Country: US (occurrence: US)
  Receive Date: 20121130
  Receipt Date: 20121130
  Transmission Date: 20130627
  Serious: No
  Sender: FDA-Public Use
  Company Number: US-PFIZER INC-2012297826

PATIENT
  Age: 78 Year
  Sex: Male

DRUGS (1)
  1. XALKORI [Suspect]
     Indication: MALIGNANT NEOPLASM OF UPPER LOBE
     Dosage: 250 mg, 2x/day (1 capsule)
     Route: 048
     Dates: start: 20120801

REACTIONS (2)
  - Heart rate decreased [Unknown]
  - Electrocardiogram change [Unknown]
